FAERS Safety Report 5263804-1 (Version None)
Quarter: 2007Q1

REPORT INFORMATION
  Report Type: 
  Country: None (occurrence: None)
  Receive Date: 20070313
  Receipt Date: 20070301
  Transmission Date: 20070707
  Serious: Yes (Other)
  Sender: FDA-Public Use
  Company Number: DE-GILEAD-2007-0011427

PATIENT
  Sex: Female
  Weight: 56 kg

DRUGS (2)
  1. TRUVADA [Suspect]
     Dates: start: 20061030
  2. NEVIRAPINE [Concomitant]
     Indication: HIV INFECTION
     Dates: start: 20061030

REACTIONS (2)
  - ABORTION SPONTANEOUS [None]
  - PREGNANCY [None]
